FAERS Safety Report 19159883 (Version 2)
Quarter: 2021Q3

REPORT INFORMATION
  Report Type: Spontaneous
  Country: US (occurrence: US)
  Receive Date: 20210421
  Receipt Date: 20210928
  Transmission Date: 20211014
  Serious: No
  Sender: FDA-Public Use
  Company Number: US-TOLMAR, INC.-21US026344

PATIENT

DRUGS (2)
  1. SYNERA [Concomitant]
     Active Substance: LIDOCAINE\TETRACAINE
     Indication: LOCAL ANAESTHESIA
     Dosage: UNK
     Route: 065
     Dates: start: 20201222
  2. FENSOLVI [Suspect]
     Active Substance: LEUPROLIDE ACETATE
     Indication: PRODUCT USED FOR UNKNOWN INDICATION
     Dosage: UNK
     Route: 065
     Dates: start: 20201222

REACTIONS (6)
  - Wrong technique in product usage process [Unknown]
  - Drug ineffective [Not Recovered/Not Resolved]
  - Product administration error [Unknown]
  - Syringe issue [Unknown]
  - Blood luteinising hormone abnormal [Not Recovered/Not Resolved]
  - Oestradiol abnormal [Not Recovered/Not Resolved]

NARRATIVE: CASE EVENT DATE: 20201222
